FAERS Safety Report 7970387-1 (Version None)
Quarter: 2011Q4

REPORT INFORMATION
  Report Type: 
  Country: None (occurrence: None)
  Receive Date: 20111212
  Receipt Date: 20111128
  Transmission Date: 20120403
  Serious: Yes (Hospitalization, Disabling, Other)
  Sender: FDA-Public Use
  Company Number: PHHY2009GB51073

PATIENT
  Sex: Male

DRUGS (1)
  1. CLOZARIL [Suspect]
     Indication: SCHIZOPHRENIA
     Dates: start: 19980323, end: 20091117

REACTIONS (8)
  - WHITE BLOOD CELL COUNT DECREASED [None]
  - MENTAL DISORDER [None]
  - ABNORMAL BEHAVIOUR [None]
  - PSYCHIATRIC SYMPTOM [None]
  - MALAISE [None]
  - DRUG WITHDRAWAL SYNDROME [None]
  - NEUTROPHIL COUNT DECREASED [None]
  - NEUTROPENIA [None]
